FAERS Safety Report 22221921 (Version 1)
Quarter: 2023Q2

REPORT INFORMATION
  Report Type: Spontaneous
  Country: US (occurrence: US)
  Receive Date: 20230418
  Receipt Date: 20230418
  Transmission Date: 20230721
  Serious: Yes (Other)
  Sender: FDA-Public Use
  Company Number: US-AMGEN-USASP2023063515

PATIENT
  Age: 66 Year
  Sex: Male

DRUGS (8)
  1. FILGRASTIM [Suspect]
     Active Substance: FILGRASTIM
     Indication: Prophylaxis
     Dosage: UNK
     Route: 065
  2. IMATINIB [Concomitant]
     Active Substance: IMATINIB
  3. MITOXANTRONE [Concomitant]
     Active Substance: MITOXANTRONE HYDROCHLORIDE
  4. CLADRIBINE [Concomitant]
     Active Substance: CLADRIBINE
  5. CYTARABINE [Concomitant]
     Active Substance: CYTARABINE
  6. UNSPECIFIED INGREDIENT [Concomitant]
     Active Substance: UNSPECIFIED INGREDIENT
  7. VIDAZA [Concomitant]
     Active Substance: AZACITIDINE
  8. PONATINIB [Concomitant]
     Active Substance: PONATINIB

REACTIONS (3)
  - Cytogenetic abnormality [Unknown]
  - Gene mutation [Unknown]
  - Acute myeloid leukaemia [Unknown]
